FAERS Safety Report 18008993 (Version 1)
Quarter: 2020Q3

REPORT INFORMATION
  Report Type: Spontaneous
  Country: US (occurrence: US)
  Receive Date: 20200710
  Receipt Date: 20200710
  Transmission Date: 20201103
  Serious: Yes (Hospitalization, Other)
  Sender: FDA-Public Use
  Company Number: US-PFIZER INC-2020263097

PATIENT
  Age: 43 Year
  Sex: Female
  Weight: 56.25 kg

DRUGS (3)
  1. LOVENOX [LEVOFLOXACIN] [Concomitant]
     Active Substance: LEVOFLOXACIN
     Dosage: 60 MG, 2X/DAY
  2. HEPARIN SODIUM. [Suspect]
     Active Substance: HEPARIN SODIUM
     Dosage: UNK
     Dates: start: 201512
  3. LOVENOX [LEVOFLOXACIN] [Concomitant]
     Active Substance: LEVOFLOXACIN
     Dosage: 60 MG, 2X/DAY

REACTIONS (5)
  - Urinary retention [Unknown]
  - Haematoma [Unknown]
  - Back pain [Unknown]
  - Thrombotic stroke [Recovered/Resolved]
  - Acute kidney injury [Unknown]
